FAERS Safety Report 5164527-X (Version None)
Quarter: 2006Q4

REPORT INFORMATION
  Report Type: 
  Country: None (occurrence: None)
  Receive Date: 20061205
  Receipt Date: 20061117
  Transmission Date: 20070319
  Serious: Yes (Hospitalization)
  Sender: FDA-Public Use
  Company Number: US-AMGEN-US200681

PATIENT
  Sex: Female

DRUGS (26)
  1. PANITUMUMAB [Suspect]
     Indication: COLORECTAL CANCER
     Route: 042
     Dates: start: 20060906
  2. FLUOROURACIL [Suspect]
     Route: 042
  3. LEUCOVORIN CALCIUM [Suspect]
     Route: 042
  4. IRINOTECAN HCL [Suspect]
     Route: 042
  5. AVASTIN [Concomitant]
     Route: 042
  6. PREPARATION H [Concomitant]
     Route: 061
     Dates: start: 20060920
  7. MAGNESIUM OXIDE [Concomitant]
     Route: 048
     Dates: start: 20061018
  8. K-DUR 10 [Concomitant]
     Route: 048
     Dates: start: 20061101
  9. AMBIEN [Concomitant]
     Route: 048
     Dates: start: 20060806
  10. COMPAZINE [Concomitant]
     Route: 048
     Dates: start: 20060829
  11. TESSALON [Concomitant]
     Route: 048
     Dates: start: 20060919
  12. TUSSIONEX [Concomitant]
     Route: 048
     Dates: start: 20060919
  13. ALOXI [Concomitant]
     Route: 042
     Dates: start: 20060906
  14. DECADRON [Concomitant]
     Route: 042
     Dates: start: 20060906
  15. NEULASTA [Concomitant]
     Route: 058
     Dates: start: 20060909
  16. ARANESP [Concomitant]
     Route: 058
     Dates: start: 20060920
  17. ACTIVASE [Concomitant]
     Route: 058
     Dates: start: 20060906
  18. CALCIUM [Concomitant]
     Route: 048
     Dates: start: 20060222
  19. DURATUSS-GP [Concomitant]
     Route: 048
     Dates: start: 20060222
  20. FERROUS SULFATE TAB [Concomitant]
     Route: 048
     Dates: start: 20060222
  21. NIFEREX [Concomitant]
     Route: 048
     Dates: start: 20060503
  22. LASIX [Concomitant]
     Route: 048
     Dates: start: 20060806
  23. HYZAAR [Concomitant]
     Route: 048
     Dates: start: 20060806
  24. ALLEGRA [Concomitant]
     Route: 048
     Dates: start: 20060806
  25. VITAMIN CAP [Concomitant]
     Route: 048
     Dates: start: 20060806
  26. TYLENOL [Concomitant]
     Route: 048
     Dates: start: 20060806

REACTIONS (3)
  - DEHYDRATION [None]
  - DIARRHOEA [None]
  - HYPOTENSION [None]
